FAERS Safety Report 14221624 (Version 1)
Quarter: 2017Q4

REPORT INFORMATION
  Report Type: Spontaneous
  Country: FR (occurrence: FR)
  Receive Date: 20171123
  Receipt Date: 20171123
  Transmission Date: 20180321
  Serious: Yes (Other)
  Sender: FDA-Public Use
  Company Number: FR-MERCK KGAA-2034979

PATIENT
  Sex: Female

DRUGS (4)
  1. NOVOTHYROX [Suspect]
     Active Substance: LEVOTHYROXINE SODIUM
     Indication: AUTOIMMUNE THYROIDITIS
  2. NEOMERCAZOLE [Concomitant]
     Active Substance: CARBIMAZOLE
  3. NEOMERCAZOLE [Concomitant]
     Active Substance: CARBIMAZOLE
  4. NEOMERCAZOLE [Concomitant]
     Active Substance: CARBIMAZOLE
     Dates: start: 20170905, end: 201710

REACTIONS (10)
  - Amenorrhoea [Unknown]
  - Fatigue [Unknown]
  - Hot flush [Unknown]
  - Hyperthyroidism [Unknown]
  - Disturbance in attention [Unknown]
  - Madarosis [Unknown]
  - Hyperhidrosis [Unknown]
  - Amnesia [Unknown]
  - Hypersomnia [Unknown]
  - Hypertrichosis [Unknown]

NARRATIVE: CASE EVENT DATE: 2017
